FAERS Safety Report 6256390-0 (Version None)
Quarter: 2009Q3

REPORT INFORMATION
  Report Type: 
  Country: None (occurrence: None)
  Receive Date: 20090701
  Receipt Date: 20090701
  Transmission Date: 20100115
  Serious: Yes (Death)
  Sender: FDA-Public Use
  Company Number: None

PATIENT
  Age: 62 Year
  Sex: Female
  Weight: 96 kg

DRUGS (1)
  1. ACTIVASE [Suspect]
     Indication: CEREBROVASCULAR ACCIDENT
     Dosage: 88 MG ONCE IV
     Route: 042
     Dates: start: 20090622, end: 20090622

REACTIONS (2)
  - HAEMORRHAGIC TRANSFORMATION STROKE [None]
  - PLATELET COUNT DECREASED [None]
